FAERS Safety Report 9146409 (Version 2)
Quarter: 2013Q1

REPORT INFORMATION
  Report Type: Spontaneous
  Country: US (occurrence: None)
  Receive Date: 20130225
  Receipt Date: 20130321
  Transmission Date: 20140127
  Serious: Yes (Death)
  Sender: FDA-Public Use
  Company Number: UTC-029279

PATIENT
  Age: 78 Year
  Sex: Male
  Weight: 79.09 kg

DRUGS (2)
  1. REMODULIN [Suspect]
     Dosage: 38.16 UG/KG (0.0265 UG/KG, 1 IN 1 MIN), SUBCUTANEOUS
     Route: 058
     Dates: start: 20120822
  2. LETAIRIS [Concomitant]

REACTIONS (1)
  - Death [None]
